FAERS Safety Report 15156968 (Version 1)
Quarter: 2018Q3

REPORT INFORMATION
  Report Type: Report from Study
  Country: IT (occurrence: IT)
  Receive Date: 20180718
  Receipt Date: 20180718
  Transmission Date: 20181010
  Serious: Yes (Other)
  Sender: FDA-Public Use
  Company Number: IT-TEVA-2018-IT-927215

PATIENT
  Age: 62 Year
  Sex: Female

DRUGS (2)
  1. DENIBAN 50 MG TABLETS [Concomitant]
  2. LORAZEPAM. [Suspect]
     Active Substance: LORAZEPAM
     Indication: PERSONALITY DISORDER
     Route: 048
     Dates: start: 20180511, end: 20180511

REACTIONS (3)
  - Sopor [Recovering/Resolving]
  - Irritability [Recovering/Resolving]
  - Vomiting [Recovering/Resolving]

NARRATIVE: CASE EVENT DATE: 20180511
